FAERS Safety Report 7530090-9 (Version None)
Quarter: 2011Q2

REPORT INFORMATION
  Report Type: 
  Country: None (occurrence: None)
  Receive Date: 20110607
  Receipt Date: 20110602
  Transmission Date: 20111010
  Serious: Yes (Death, Hospitalization)
  Sender: FDA-Public Use
  Company Number: PHHY2011JP48009

PATIENT
  Age: 78 Year
  Sex: Male

DRUGS (4)
  1. OXINORM [Concomitant]
  2. LOXONIN [Concomitant]
     Route: 048
  3. ZOMETA [Suspect]
     Indication: METASTASES TO BONE
     Dosage: 4 MG, UNK
     Route: 042
     Dates: start: 20110420
  4. OXYCONTIN [Concomitant]
     Route: 048

REACTIONS (7)
  - MULTI-ORGAN FAILURE [None]
  - PYREXIA [None]
  - HYPERCAPNIA [None]
  - DYSPNOEA [None]
  - HAEMOGLOBIN DECREASED [None]
  - DISSEMINATED INTRAVASCULAR COAGULATION [None]
  - INTERSTITIAL LUNG DISEASE [None]
